FAERS Safety Report 25953570 (Version 1)
Quarter: 2025Q4

REPORT INFORMATION
  Report Type: Spontaneous
  Country: US (occurrence: None)
  Receive Date: 20251022
  Receipt Date: 20251022
  Transmission Date: 20260118
  Serious: Yes (Hospitalization)
  Sender: FDA-CTU
  Company Number: None

PATIENT
  Sex: Female

DRUGS (1)
  1. ALVAIZ [Suspect]
     Active Substance: ELTROMBOPAG CHOLINE
     Indication: Essential hypertension
     Dosage: 36 MG DAILY ORAL
     Route: 048
     Dates: start: 20250403, end: 20250926

REACTIONS (1)
  - Product use issue [None]
